FAERS Safety Report 11175983 (Version 2)
Quarter: 2015Q3

REPORT INFORMATION
  Report Type: Spontaneous
  Country: US (occurrence: US)
  Receive Date: 20150609
  Receipt Date: 20150901
  Transmission Date: 20151125
  Serious: No
  Sender: FDA-Public Use
  Company Number: US-ASTRAZENECA-2015SE53897

PATIENT
  Age: 63 Year
  Sex: Male
  Weight: 86.2 kg

DRUGS (11)
  1. OMEGA [Concomitant]
     Active Substance: CONVALLARIA MAJALIS\CRATAEGUS LAEVIGATA LEAF\PROXYPHYLLINE
  2. FISH OIL [Concomitant]
     Active Substance: FISH OIL
  3. OMEPRAZOLE. [Suspect]
     Active Substance: OMEPRAZOLE
     Indication: BARRETT^S OESOPHAGUS
     Route: 048
     Dates: start: 201411
  4. LOW DOSE ASPIRIN [Concomitant]
     Active Substance: ASPIRIN
     Indication: CARDIOVASCULAR EVENT PROPHYLAXIS
     Route: 048
  5. VITAMIN B12 [Concomitant]
     Active Substance: CYANOCOBALAMIN
  6. CRESTOR [Suspect]
     Active Substance: ROSUVASTATIN CALCIUM
     Indication: BLOOD CHOLESTEROL ABNORMAL
     Route: 048
     Dates: start: 20150320
  7. XANAX [Concomitant]
     Active Substance: ALPRAZOLAM
     Indication: ANXIETY
     Route: 048
  8. MILK THISTLE [Concomitant]
     Active Substance: MILK THISTLE
  9. OMEPRAZOLE. [Suspect]
     Active Substance: OMEPRAZOLE
     Indication: GASTROOESOPHAGEAL REFLUX DISEASE
     Route: 048
     Dates: start: 201411
  10. SALAGEN [Concomitant]
     Active Substance: PILOCARPINE HYDROCHLORIDE
     Indication: DRY MOUTH
     Route: 048
  11. CENTRUM SILVER [Concomitant]
     Active Substance: VITAMINS

REACTIONS (14)
  - Aspartate aminotransferase increased [Unknown]
  - Blood triglycerides increased [Unknown]
  - Arthralgia [Unknown]
  - Alcohol interaction [Unknown]
  - Weight increased [Unknown]
  - Pain in extremity [Unknown]
  - Alanine aminotransferase increased [Unknown]
  - Off label use [Unknown]
  - Back pain [Unknown]
  - Abasia [Unknown]
  - Intentional product misuse [Unknown]
  - Myalgia [Unknown]
  - Musculoskeletal pain [Unknown]
  - Product use issue [Unknown]

NARRATIVE: CASE EVENT DATE: 2015
